FAERS Safety Report 7444343-6 (Version None)
Quarter: 2011Q2

REPORT INFORMATION
  Report Type: 
  Country: None (occurrence: None)
  Receive Date: 20110427
  Receipt Date: 20110427
  Transmission Date: 20111010
  Serious: No
  Sender: FDA-Public Use
  Company Number: None

PATIENT
  Age: 65 Year
  Sex: Female
  Weight: 103.4201 kg

DRUGS (1)
  1. MULTAQ [Suspect]
     Indication: ATRIAL FIBRILLATION
     Dosage: 400MG 2 TIMES DAILY PO
     Route: 048
     Dates: start: 20110221, end: 20110225

REACTIONS (5)
  - MALAISE [None]
  - PAIN IN EXTREMITY [None]
  - CHEST PAIN [None]
  - PALPITATIONS [None]
  - CHEST DISCOMFORT [None]
